FAERS Safety Report 10210481 (Version 1)
Quarter: 2014Q2

REPORT INFORMATION
  Report Type: Spontaneous
  Country: FR (occurrence: FR)
  Receive Date: 20140602
  Receipt Date: 20140602
  Transmission Date: 20141212
  Serious: Yes (Death, Hospitalization)
  Sender: FDA-Public Use
  Company Number: PHHY2014FR062685

PATIENT
  Age: 64 Year
  Sex: Female

DRUGS (2)
  1. METHOTREXATE [Suspect]
     Indication: RHEUMATOID ARTHRITIS
  2. PREDNISONE [Concomitant]

REACTIONS (8)
  - Angiocentric lymphoma [Fatal]
  - Pleural effusion [Fatal]
  - Epstein-Barr virus test positive [Fatal]
  - Pulmonary mass [Fatal]
  - Intestinal ischaemia [Fatal]
  - Respiratory failure [Unknown]
  - Histiocytosis haematophagic [Unknown]
  - Lymphoproliferative disorder [Unknown]
